FAERS Safety Report 10422342 (Version 1)
Quarter: 2014Q3

REPORT INFORMATION
  Report Type: Spontaneous
  Country: US (occurrence: US)
  Receive Date: 20140901
  Receipt Date: 20140901
  Transmission Date: 20150326
  Serious: Yes (Death, Other)
  Sender: FDA-Public Use
  Company Number: US-TAKEDA-2014TUS007982

PATIENT
  Sex: Male

DRUGS (2)
  1. DIURETICS [Concomitant]
     Active Substance: UNSPECIFIED INGREDIENT
     Dosage: UNK
     Route: 048
     Dates: end: 201408
  2. COLCRYS [Suspect]
     Active Substance: COLCHICINE
     Indication: GOUT
     Dosage: 0.6 MG, 2 TABLETS FOR 1ST DOSE FOLLOWED BY 1 TAB AN HR LATER AND THEN 12 HR LATER TO TAKE 1 DAILY
     Route: 065
     Dates: start: 20140822, end: 201408

REACTIONS (1)
  - Myocardial infarction [Fatal]
